FAERS Safety Report 9669672 (Version 1)
Quarter: 2013Q4

REPORT INFORMATION
  Report Type: Spontaneous
  Country: DE (occurrence: DE)
  Receive Date: 20131105
  Receipt Date: 20131105
  Transmission Date: 20140711
  Serious: Yes (Hospitalization)
  Sender: FDA-Public Use
  Company Number: DE-BRISTOL-MYERS SQUIBB COMPANY-19391721

PATIENT
  Age: 75 Year
  Sex: Female
  Weight: 62 kg

DRUGS (3)
  1. ONGLYZA TABS 2.5 MG [Suspect]
     Indication: TYPE 2 DIABETES MELLITUS
     Route: 048
     Dates: start: 20130704
  2. CARBIMAZOLE [Concomitant]
  3. METFORMIN HCL [Concomitant]

REACTIONS (2)
  - Rash [Recovered/Resolved]
  - Hepatic enzyme increased [Recovered/Resolved]
